FAERS Safety Report 8069123-2 (Version None)
Quarter: 2012Q1

REPORT INFORMATION
  Report Type: 
  Country: None (occurrence: None)
  Receive Date: 20120125
  Receipt Date: 20120112
  Transmission Date: 20120608
  Serious: Yes (Other)
  Sender: FDA-Public Use
  Company Number: NZ-UCBSA-049678

PATIENT
  Sex: Female

DRUGS (4)
  1. CLOBAZAM [Concomitant]
  2. VALPROATE SODIUM [Concomitant]
     Dosage: 2-3G DAILY
  3. VIMPAT [Suspect]
     Dosage: 400MG DAILY
     Dates: start: 20110101
  4. VIGABATRIN [Concomitant]

REACTIONS (3)
  - TWIN PREGNANCY [None]
  - MATERNAL EXPOSURE DURING PREGNANCY [None]
  - ABORTION SPONTANEOUS [None]
